FAERS Safety Report 6941416 (Version 13)
Quarter: 2020Q1

REPORT INFORMATION
  Report Type: Spontaneous
  Country: BR (occurrence: BR)
  Receive Date: 20090316
  Receipt Date: 20200225
  Transmission Date: 20200409
  Serious: Yes (Hospitalization, Other)
  Sender: FDA-Public Use
  Company Number: BR-ROCHE-615779

PATIENT
  Age: 61 Year
  Sex: Female
  Weight: 27 kg

DRUGS (21)
  1. CLOZAPINE. [Suspect]
     Active Substance: CLOZAPINE
     Indication: PRODUCT USED FOR UNKNOWN INDICATION
     Route: 065
  2. OLCADIL [Concomitant]
     Active Substance: CLOXAZOLAM
  3. QUETIAPINE. [Suspect]
     Active Substance: QUETIAPINE
     Indication: PRODUCT USED FOR UNKNOWN INDICATION
     Route: 065
  4. FLUOXETIN [Suspect]
     Active Substance: FLUOXETINE HYDROCHLORIDE
     Indication: DEPRESSION
     Route: 048
  5. GINKGO BILOBA [Concomitant]
     Active Substance: GINKGO
     Indication: CARDIOVASCULAR DISORDER
     Dosage: ONE CAPSULE/DAY DURING 2 YEARS
     Route: 048
  6. ALGINAC [Concomitant]
     Active Substance: CYANOCOBALAMIN\DICLOFENAC SODIUM\PYRIDOXINE HYDROCHLORIDE\THIAMINE MONONITRATE
     Indication: BONE PAIN
  7. CLONAZEPAM. [Suspect]
     Active Substance: CLONAZEPAM
     Indication: DEPRESSION
     Route: 065
     Dates: start: 20091228, end: 20100101
  8. OMEPRAZOLE. [Concomitant]
     Active Substance: OMEPRAZOLE
     Route: 048
  9. RIVOTRIL [Interacting]
     Active Substance: CLONAZEPAM
     Indication: INSOMNIA
     Dosage: QUARTER TABLET IN THE MORNING / A QUARTER AT NIGHT
     Route: 048
     Dates: start: 1990
  10. DIAZEPAM. [Suspect]
     Active Substance: DIAZEPAM
     Indication: ANXIETY
     Route: 065
  11. LABIRIN [Concomitant]
     Active Substance: BETAHISTINE
     Indication: DIZZINESS
     Route: 048
     Dates: end: 20090308
  12. HALDOL [Concomitant]
     Active Substance: HALOPERIDOL
     Indication: DEPRESSION
     Route: 065
     Dates: start: 2003, end: 2003
  13. DICETEL [Suspect]
     Active Substance: PINAVERIUM BROMIDE
     Indication: CONSTIPATION
     Dosage: START DATE : 2009 AND STOP DATE: 2009
     Route: 048
  14. MIOSAN [Interacting]
     Active Substance: CYCLOBENZAPRINE
     Indication: MUSCLE RELAXANT THERAPY
     Route: 065
  15. TRAMAL [Suspect]
     Active Substance: TRAMADOL
     Indication: PRODUCT USED FOR UNKNOWN INDICATION
     Route: 065
  16. SERTRALINE [Concomitant]
     Active Substance: SERTRALINE HYDROCHLORIDE
     Indication: DEPRESSION
     Route: 048
  17. FLORATIL [SACCHAROMYCES BOULARDII] [Concomitant]
  18. RIVOTRIL [Suspect]
     Active Substance: CLONAZEPAM
     Indication: DEPRESSION
     Dosage: 1 TABLET BY MORNING EVERY DAY, BY  HALF TABLET NIGHT AFTER MEALS
     Route: 048
     Dates: start: 1986, end: 200905
  19. RIVOTRIL [Interacting]
     Active Substance: CLONAZEPAM
     Indication: ANXIETY
     Dosage: RESTARTED AFTER HOSPITALISATION
     Route: 048
     Dates: end: 200912
  20. RIVOTRIL [Interacting]
     Active Substance: CLONAZEPAM
     Route: 048
  21. CLOMIPRAMINE HCL [Interacting]
     Active Substance: CLOMIPRAMINE
     Indication: PRODUCT USED FOR UNKNOWN INDICATION
     Route: 065
     Dates: start: 2012

REACTIONS (59)
  - Breast mass [Unknown]
  - Haemangioma of liver [Recovered/Resolved]
  - Anger [Unknown]
  - Osteoporosis [Not Recovered/Not Resolved]
  - Drug ineffective [Unknown]
  - Insomnia [Unknown]
  - Feeling drunk [Unknown]
  - Suicidal ideation [Recovered/Resolved]
  - Fatigue [Not Recovered/Not Resolved]
  - Memory impairment [Recovered/Resolved]
  - Muscular weakness [Not Recovered/Not Resolved]
  - Insomnia [Recovered/Resolved]
  - Anxiety [Unknown]
  - Psychiatric symptom [Not Recovered/Not Resolved]
  - Intestinal polyp [Recovered/Resolved]
  - Intervertebral disc protrusion [Unknown]
  - Constipation [Recovered/Resolved]
  - Palpitations [Not Recovered/Not Resolved]
  - Vision blurred [Not Recovered/Not Resolved]
  - Scoliosis [Unknown]
  - Gastritis [Not Recovered/Not Resolved]
  - Osteoarthritis [Not Recovered/Not Resolved]
  - Liver disorder [Unknown]
  - Amnesia [Not Recovered/Not Resolved]
  - Aggression [Not Recovered/Not Resolved]
  - Nervousness [Not Recovered/Not Resolved]
  - Headache [Not Recovered/Not Resolved]
  - Insomnia [Recovered/Resolved]
  - Diarrhoea [Recovered/Resolved]
  - Nightmare [Recovered/Resolved]
  - Salivary hypersecretion [Unknown]
  - Hallucination [Recovered/Resolved]
  - Platelet count decreased [Unknown]
  - Pancreatic neoplasm [Unknown]
  - Hyperhidrosis [Unknown]
  - Bipolar disorder [Recovered/Resolved]
  - Intervertebral disc protrusion [Not Recovered/Not Resolved]
  - Drug dependence [Unknown]
  - Tinnitus [Not Recovered/Not Resolved]
  - Osteoporosis [Not Recovered/Not Resolved]
  - Irritability [Unknown]
  - Fibromyalgia [Not Recovered/Not Resolved]
  - Dizziness [Not Recovered/Not Resolved]
  - Hypoaesthesia [Unknown]
  - Retching [Not Recovered/Not Resolved]
  - Panic disorder [Not Recovered/Not Resolved]
  - Osteoarthritis [Not Recovered/Not Resolved]
  - Nausea [Unknown]
  - Drug interaction [Unknown]
  - Tremor [Unknown]
  - Therapy naive [Unknown]
  - Abdominal pain upper [Not Recovered/Not Resolved]
  - Gastrointestinal pain [Not Recovered/Not Resolved]
  - Vomiting [Recovered/Resolved]
  - Crying [Unknown]
  - Pruritus [Recovered/Resolved]
  - Pancreatic carcinoma [Recovered/Resolved]
  - Depression [Unknown]
  - Dyspnoea [Not Recovered/Not Resolved]

NARRATIVE: CASE EVENT DATE: 1990
